FAERS Safety Report 11792941 (Version 1)
Quarter: 2015Q4

REPORT INFORMATION
  Report Type: Spontaneous
  Country: US (occurrence: None)
  Receive Date: 20151130
  Receipt Date: 20151130
  Transmission Date: 20160305
  Serious: Yes (Hospitalization, Other)
  Sender: FDA-Public Use
  Company Number: 2015US-106621

PATIENT
  Age: 44 Year
  Sex: Male

DRUGS (1)
  1. PREDNISONE (PREDNISONE) UNKNOWN [Suspect]
     Active Substance: PREDNISONE
     Indication: CLUSTER HEADACHE

REACTIONS (8)
  - Hyponatraemia [None]
  - Transaminases increased [None]
  - Pneumonia legionella [None]
  - Acute respiratory distress syndrome [None]
  - Mental status changes [None]
  - Pneumocystis jirovecii infection [None]
  - Thrombocytopenia [None]
  - Legionella infection [None]
